FAERS Safety Report 8922566 (Version 1)
Quarter: 2012Q4

REPORT INFORMATION
  Report Type: Spontaneous
  Country: ES (occurrence: None)
  Receive Date: 20121109
  Receipt Date: 20121109
  Transmission Date: 20130627
  Serious: Yes (Hospitalization)
  Sender: FDA-Public Use
  Company Number: 2012S1000381

PATIENT
  Age: 85 Year
  Sex: Female

DRUGS (1)
  1. CUBICIN [Suspect]
     Indication: INFECTION

REACTIONS (2)
  - Eosinophilic pneumonia [None]
  - Off label use [None]
